FAERS Safety Report 10713348 (Version 3)
Quarter: 2015Q1

REPORT INFORMATION
  Report Type: Spontaneous
  Country: BR (occurrence: BR)
  Receive Date: 20150115
  Receipt Date: 20150127
  Transmission Date: 20150721
  Serious: Yes (Other)
  Sender: FDA-Public Use
  Company Number: BR-SA-2015SA004537

PATIENT
  Age: 38 Year
  Sex: Male

DRUGS (4)
  1. LIPANON [Concomitant]
     Active Substance: FENOFIBRATE
  2. METADOXIL [Concomitant]
  3. ALLOPURINOL. [Concomitant]
     Active Substance: ALLOPURINOL
  4. CLEXANE [Suspect]
     Active Substance: ENOXAPARIN SODIUM
     Indication: PROPHYLAXIS
     Dosage: CLEXANE SAFETY LOCK 40 MG SYRINGES; DOSE: 1 SYRINGE AT THE SURGICAL CENTER; SYRINGE
     Route: 058

REACTIONS (3)
  - Cellulitis [Recovering/Resolving]
  - Injection site oedema [Recovering/Resolving]
  - Injection site reaction [Recovering/Resolving]
